FAERS Safety Report 8484231-X (Version None)
Quarter: 2012Q2

REPORT INFORMATION
  Report Type: 
  Country: None (occurrence: None)
  Receive Date: 20120625
  Receipt Date: 20120608
  Transmission Date: 20120825
  Serious: Yes (Hospitalization, Other)
  Sender: FDA-Public Use
  Company Number: 2012-000924

PATIENT
  Age: 44 Year
  Sex: Female

DRUGS (35)
  1. LISINOPRIL [Concomitant]
  2. HYDRALAZINE HCL [Concomitant]
  3. GLIPIZIDE [Concomitant]
  4. COUMADIN [Concomitant]
  5. FLOVENT [Concomitant]
  6. TRAMADOL HCL [Concomitant]
  7. MEDROXYPROGESTERONE [Concomitant]
  8. ALUPENT [Concomitant]
  9. CITALOPRAM HYDROBROMIDE [Concomitant]
  10. FOSAMAX [Suspect]
     Indication: OSTEOPOROSIS
     Dosage: 70 MG ONCE WEEKLY, UNKNOWN DOSE DAILY, ORAL
     Dates: start: 20011205
  11. FOSAMAX [Suspect]
     Indication: OSTEOPOROSIS
     Dosage: 70 MG ONCE WEEKLY, UNKNOWN DOSE DAILY, ORAL
     Dates: start: 20040522, end: 20111115
  12. OSCAL /00751519/ (CALCIUM CARBONATE) [Concomitant]
  13. ADVAIR HFA [Concomitant]
  14. CROMOLYN /00082101/ (CROMOGLICIC ACID) [Concomitant]
  15. NEXIUM [Concomitant]
  16. SIMVASTATIN [Concomitant]
  17. PREDNISONE TAB [Concomitant]
  18. ALBUTEROL [Concomitant]
  19. HYDROCODONE BITARTRATE + ACETAMINOPHEN [Concomitant]
  20. UNIPHYL [Concomitant]
  21. CARDURA [Concomitant]
  22. RANITIDINE HYDROCHLORIDE [Concomitant]
  23. METFFORMIN HYDROCHLORIDE [Concomitant]
  24. TRIAMTERENE AND HYDROCHLOROTHIAZIDE [Concomitant]
  25. ACTONEL [Suspect]
     Indication: OSTEOPOROSIS
     Dosage: 35 MG ONCE WEEKLY, ORAL
     Route: 048
     Dates: start: 20040825, end: 20070401
  26. DILTIAZEM [Concomitant]
  27. VITAMIN D [Concomitant]
  28. MONOPRIL [Concomitant]
  29. LORATADINE [Concomitant]
  30. PULMICORT [Concomitant]
  31. PATANOL [Concomitant]
  32. ZOCOR [Concomitant]
  33. ATENOLOL [Concomitant]
  34. SINGULAIR [Concomitant]
  35. VITAMIN C /00008001/ (ASCORBIC ACID) [Concomitant]

REACTIONS (5)
  - FEMUR FRACTURE [None]
  - FALL [None]
  - FRACTURE DISPLACEMENT [None]
  - COMMINUTED FRACTURE [None]
  - PATHOLOGICAL FRACTURE [None]
